FAERS Safety Report 22676441 (Version 5)
Quarter: 2023Q4

REPORT INFORMATION
  Report Type: Report from Study
  Country: CO (occurrence: CO)
  Receive Date: 20230706
  Receipt Date: 20231101
  Transmission Date: 20240110
  Serious: Yes (Hospitalization, Other)
  Sender: FDA-Public Use
  Company Number: CO-BAYER-2023A055755

PATIENT
  Age: 43 Year
  Sex: Female

DRUGS (4)
  1. ADEMPAS [Suspect]
     Active Substance: RIOCIGUAT
     Indication: Pulmonary arterial hypertension
     Dosage: 1 MG, Q8HR
     Route: 048
     Dates: start: 202304
  2. ADEMPAS [Suspect]
     Active Substance: RIOCIGUAT
     Indication: Pulmonary arterial hypertension
     Dosage: 2.5 MG, Q8HR
     Route: 048
     Dates: start: 20230403
  3. ADEMPAS [Suspect]
     Active Substance: RIOCIGUAT
     Indication: Pulmonary arterial hypertension
     Dosage: 1.5 MG, Q8HR
     Route: 048
     Dates: start: 20230403
  4. ADEMPAS [Suspect]
     Active Substance: RIOCIGUAT
     Indication: Pulmonary arterial hypertension
     Dosage: 1 MG, Q8HR
     Dates: start: 20230403

REACTIONS (21)
  - Hypotension [None]
  - Syncope [None]
  - Cardiac output decreased [None]
  - Dizziness [Not Recovered/Not Resolved]
  - Hypertension [None]
  - Chest pain [Not Recovered/Not Resolved]
  - Malaise [Not Recovered/Not Resolved]
  - Fatigue [Not Recovered/Not Resolved]
  - Headache [None]
  - Dizziness [Not Recovered/Not Resolved]
  - Hypotension [None]
  - Eye swelling [None]
  - Swelling face [None]
  - Peripheral swelling [None]
  - Arthralgia [None]
  - Sleep disorder [None]
  - Irritability [None]
  - Depression [None]
  - Fall [None]
  - Incorrect dose administered [None]
  - Dizziness [Not Recovered/Not Resolved]

NARRATIVE: CASE EVENT DATE: 20230401
